FAERS Safety Report 20990198 (Version 2)
Quarter: 2022Q4

REPORT INFORMATION
  Report Type: Spontaneous
  Country: US (occurrence: US)
  Receive Date: 20220621
  Receipt Date: 20221122
  Transmission Date: 20230113
  Serious: Yes (Hospitalization, Other)
  Sender: FDA-Public Use
  Company Number: US-MALLINCKRODT-T202203114

PATIENT
  Sex: Female
  Weight: 93 kg

DRUGS (2)
  1. H.P. ACTHAR [Suspect]
     Active Substance: CORTICOTROPIN
     Indication: Rheumatoid arthritis
     Dosage: 80 UNITS/1 MILLILITER, TWICE A WEEK
     Route: 058
     Dates: start: 202205, end: 2022
  2. H.P. ACTHAR [Suspect]
     Active Substance: CORTICOTROPIN
     Dosage: 80 UNITS/1 MILLILITER, TWICE A WEEK
     Route: 058
     Dates: start: 202211

REACTIONS (3)
  - Facial bones fracture [Unknown]
  - Nasal operation [Not Recovered/Not Resolved]
  - COVID-19 [Unknown]

NARRATIVE: CASE EVENT DATE: 20220101
